FAERS Safety Report 26019155 (Version 4)
Quarter: 2025Q4

REPORT INFORMATION
  Report Type: Report from Study
  Country: EU (occurrence: EU)
  Receive Date: 20251110
  Receipt Date: 20251230
  Transmission Date: 20260118
  Serious: Yes (Hospitalization)
  Sender: ABBVIE
  Company Number: EU-ABBVIE-6469729

PATIENT
  Age: 69 Year
  Sex: Female
  Weight: 69 kg

DRUGS (18)
  1. FOSCARBIDOPA\FOSLEVODOPA [Suspect]
     Active Substance: FOSCARBIDOPA\FOSLEVODOPA
     Indication: Parkinson^s disease
     Dosage: CRN: 0.40 ML/H, CR: 0.56 ML/H, CRH: 0.59 ML/H, ED: 0.30 ML
     Route: 058
     Dates: start: 20241029
  2. FOSCARBIDOPA\FOSLEVODOPA [Suspect]
     Active Substance: FOSCARBIDOPA\FOSLEVODOPA
     Dosage: CRN: 0.40 ML/H, CR: 0.58 ML/H, CRH: 0.60 ML/H, ED: 0.30 ML
     Route: 058
     Dates: start: 2025, end: 2025
  3. FOSCARBIDOPA\FOSLEVODOPA [Suspect]
     Active Substance: FOSCARBIDOPA\FOSLEVODOPA
     Dosage: AT NIGHT CRN: 0.35 ML/H, DURING THE DAY CR: 0.50 ML/H
     Route: 058
     Dates: start: 2025, end: 2025
  4. FOSCARBIDOPA\FOSLEVODOPA [Suspect]
     Active Substance: FOSCARBIDOPA\FOSLEVODOPA
     Dosage: 240 MG/ML 12 MG/ML, FLOW RATE DURING THE DAY 0.58 ML/H.
     Route: 058
     Dates: start: 2025, end: 2025
  5. FOSCARBIDOPA\FOSLEVODOPA [Suspect]
     Active Substance: FOSCARBIDOPA\FOSLEVODOPA
     Dosage: (SD: 0ML), CRN: 0.40ML/H, CR: 0.56ML/H, CRH: 0.59ML/H, ED: 0.30 ML
     Route: 058
     Dates: start: 2025
  6. MAGNESIUM CITRATE [Concomitant]
     Active Substance: MAGNESIUM CITRATE
     Indication: Product used for unknown indication
     Dosage: 0-0-1 SACHET
     Route: 048
  7. METAMIZOLE SODIUM [Concomitant]
     Active Substance: METAMIZOLE SODIUM
     Indication: Pain
     Dosage: 1 UNIT PER DOSE, MAXIMUM PER 6 HOURS: 1 UNIT, MINIMUM INTERVAL BETWEEN TWO ADMINISTRATIONS: 4 HOURS
     Route: 048
  8. XYLOMETAZOLINE [Concomitant]
     Active Substance: XYLOMETAZOLINE
     Indication: Nasal congestion
     Dosage: 1 SPRAY PER DOSE, MAXIMUM PER 8H: 1 STROKE
     Route: 045
  9. PANTOPRAZOLE [Concomitant]
     Active Substance: PANTOPRAZOLE
     Indication: Product used for unknown indication
     Dosage: 1-0-0 PIECE
     Route: 048
     Dates: start: 20251118
  10. PANTOPRAZOLE [Concomitant]
     Active Substance: PANTOPRAZOLE
     Indication: Product used for unknown indication
     Dosage: 1-0-0-0 PIECE
     Route: 048
  11. RIVOTRIL [Concomitant]
     Active Substance: CLONAZEPAM
     Indication: Product used for unknown indication
     Dosage: 0.25 UNITS AT 10:00 PM
     Route: 048
     Dates: start: 20251117
  12. CLOZAPINE [Concomitant]
     Active Substance: CLOZAPINE
     Indication: Hallucination
     Dosage: 0.5 TABLET PER DOSE, MAXIMUM 24 HOURS: 4 TIMES
     Route: 048
  13. CLOZAPINE [Concomitant]
     Active Substance: CLOZAPINE
     Indication: Hallucination
     Dosage: 1 UNIT AT 7:00 PM
     Route: 048
  14. CHOLECALCIFEROL [Concomitant]
     Active Substance: CHOLECALCIFEROL
     Indication: Product used for unknown indication
     Dosage: 1-0-0 PIECE
     Route: 048
  15. DALTEPARIN [Concomitant]
     Active Substance: DALTEPARIN
     Indication: Product used for unknown indication
     Dosage: DALTEPARIN MULTI 10,000 1 IU/ML SUBCUTANEOUS IFL 10ML?5000 IU AT 19:00
     Route: 058
  16. BENSERAZIDE HYDROCHLORIDE\LEVODOPA [Concomitant]
     Active Substance: BENSERAZIDE HYDROCHLORIDE\LEVODOPA
     Indication: Immobile
     Dosage: 100/25 MG TSE, 0.5 UNITS PER DOSE, MAXIMUM 6 HOURS EACH: 0,5 PIECE
  17. POLYETHYLENE GLYCOLS [Concomitant]
     Active Substance: POLYETHYLENE GLYCOLS
     Indication: Product used for unknown indication
     Dosage: 1-1-0 SACHET
     Route: 048
  18. METAMIZOL [Concomitant]
     Active Substance: METAMIZOLE SODIUM
     Indication: Pain
     Dosage: 1 UNIT PER ADMINISTRATION, MAXIMUM PER 6H: 1 UNIT; MINIMUM INTERVAL TWO ADMINISTRATIONS: 4H
     Route: 048

REACTIONS (24)
  - Fall [Unknown]
  - Osteoporosis [Unknown]
  - Femur fracture [Unknown]
  - Psychotic disorder [Not Recovered/Not Resolved]
  - Soft tissue injury [Unknown]
  - Femoral neck fracture [Unknown]
  - Infusion site pruritus [Recovering/Resolving]
  - Hallucination [Recovered/Resolved]
  - Joint dislocation [Unknown]
  - On and off phenomenon [Unknown]
  - Blood pressure decreased [Unknown]
  - Orthostatic hypotension [Unknown]
  - Paranoia [Unknown]
  - Hypoacusis [Unknown]
  - Dysphoria [Unknown]
  - Somnolence [Unknown]
  - Akinesia [Unknown]
  - Aggression [Unknown]
  - Bradyphrenia [Unknown]
  - Hyporesponsive to stimuli [Unknown]
  - Orthostatic intolerance [Unknown]
  - Behaviour disorder [Unknown]
  - Infusion site swelling [Recovering/Resolving]
  - Infusion site erythema [Recovering/Resolving]

NARRATIVE: CASE EVENT DATE: 20250101
